FAERS Safety Report 21924956 (Version 1)
Quarter: 2023Q1

REPORT INFORMATION
  Report Type: Spontaneous
  Country: US (occurrence: US)
  Receive Date: 20230130
  Receipt Date: 20230130
  Transmission Date: 20230418
  Serious: No
  Sender: FDA-Public Use
  Company Number: US-ABBVIE-4247336

PATIENT
  Sex: Female

DRUGS (1)
  1. SYNTHROID [Suspect]
     Active Substance: LEVOTHYROXINE SODIUM
     Indication: Product used for unknown indication
     Dosage: DURATION TEXT: OVER 30 YEARS
     Route: 048

REACTIONS (8)
  - Hyperthyroidism [Unknown]
  - Feeling jittery [Unknown]
  - Headache [Unknown]
  - Hyperhidrosis [Unknown]
  - Thinking abnormal [Unknown]
  - Nausea [Unknown]
  - Heart rate irregular [Unknown]
  - Heart rate increased [Unknown]
